FAERS Safety Report 20316519 (Version 2)
Quarter: 2022Q1

REPORT INFORMATION
  Report Type: Report from Study
  Country: UG (occurrence: None)
  Receive Date: 20220110
  Receipt Date: 20220331
  Transmission Date: 20220424
  Serious: Yes (Hospitalization)
  Sender: FDA-Public Use
  Company Number: UG-ROCHE-2995870

PATIENT
  Age: 57 Year
  Sex: Female

DRUGS (27)
  1. RITUXIMAB [Suspect]
     Active Substance: RITUXIMAB
     Indication: Diffuse large B-cell lymphoma
     Route: 065
  2. BISACODYL [Concomitant]
     Active Substance: BISACODYL
     Dosage: ORAL BISACODYL 10MG NOCTE 16-23/AUG/2021
     Route: 048
     Dates: start: 20210816, end: 20210823
  3. FEBUXOSTAT [Concomitant]
     Active Substance: FEBUXOSTAT
     Dosage: ORAL FEBUXOSTAT 80MG OD 04-11/AUG/2021
     Route: 048
     Dates: start: 20210804, end: 20210811
  4. FEBUXOSTAT [Concomitant]
     Active Substance: FEBUXOSTAT
     Dosage: ORAL FEBUXOSTAT 80MG OD 07-13/SEP/2021
     Route: 048
     Dates: start: 20210907, end: 20210913
  5. FEBUXOSTAT [Concomitant]
     Active Substance: FEBUXOSTAT
     Dosage: ORAL FEBUXOSTAT 80MG OD 28SEP-04/OCT/2021
     Route: 048
     Dates: start: 20210928, end: 20211004
  6. FEBUXOSTAT [Concomitant]
     Active Substance: FEBUXOSTAT
     Dosage: ORAL FEBUXOSTAT 80MG BD 03-09/DEC/2021
     Route: 048
     Dates: start: 20211203, end: 20211209
  7. LOPERAMIDE [Concomitant]
     Active Substance: LOPERAMIDE
     Dosage: ORAL LOPERAMIDE 20MG 8HRLY 16-18/AUG/2021
     Route: 048
     Dates: start: 20210816, end: 20210818
  8. LOPERAMIDE [Concomitant]
     Active Substance: LOPERAMIDE
     Dosage: ORAL LOPERAMIDE 4MG 8HRLY 9-12/SEP/2021
     Route: 048
     Dates: start: 20210909, end: 20210912
  9. OMEPRAZOLE [Concomitant]
     Active Substance: OMEPRAZOLE
     Dosage: ORAL OMEPRAZOLE 20MG OD 16-23/AUG/2021
     Route: 048
     Dates: start: 20210816, end: 20210823
  10. OMEPRAZOLE [Concomitant]
     Active Substance: OMEPRAZOLE
     Dosage: ORAL OMEPRAZOLE 20MG BD 07-14/SEP/2021
     Route: 048
     Dates: start: 20210907, end: 20210914
  11. OMEPRAZOLE [Concomitant]
     Active Substance: OMEPRAZOLE
     Dosage: ORAL OMEPRAZOLE 20MG BD 28SEP-05/OCT/2021
     Route: 048
     Dates: start: 20210928, end: 20211005
  12. OMEPRAZOLE [Concomitant]
     Active Substance: OMEPRAZOLE
     Dosage: ORAL OMEPRAZOLE 20MG BD 22-29/OCT/2021
     Route: 048
     Dates: start: 20211022, end: 20211029
  13. OMEPRAZOLE [Concomitant]
     Active Substance: OMEPRAZOLE
     Dosage: ORAL OMEPRAZOLE 20MG BD 12-19/NOV/2021
     Route: 048
     Dates: start: 20211112, end: 20211119
  14. OMEPRAZOLE [Concomitant]
     Active Substance: OMEPRAZOLE
     Dosage: ORAL OMEPRAZOLE 20MG BD 03-10/DEC/2021
     Route: 048
     Dates: start: 20211203, end: 20211210
  15. ONDANSETRON [Concomitant]
     Active Substance: ONDANSETRON
     Dosage: ORAL ONDANSETRONE 8MG BD 16-21/AUG/2021
     Route: 048
     Dates: start: 20210816, end: 20210821
  16. ONDANSETRON [Concomitant]
     Active Substance: ONDANSETRON
     Dosage: ORAL ONDANSETRONE 8MG BD 07-12/SEP/2021
     Route: 048
     Dates: start: 20210907, end: 20210912
  17. ONDANSETRON [Concomitant]
     Active Substance: ONDANSETRON
     Dosage: ORAL ONDANSETRONE 8MG BD 29SEP-02/OCT/2021
     Dates: start: 20210929, end: 20211002
  18. ONDANSETRON [Concomitant]
     Active Substance: ONDANSETRON
     Dosage: ORAL ONDANSETRONE 8MG BD 23-28/OCT/2021
     Route: 048
     Dates: start: 20211023, end: 20211028
  19. ONDANSETRON [Concomitant]
     Active Substance: ONDANSETRON
     Dosage: ORAL ONDANSETRONE 8MG BD 12-17/NOV/2021
     Route: 048
     Dates: start: 20211112, end: 20211117
  20. ONDANSETRON [Concomitant]
     Active Substance: ONDANSETRON
     Dosage: ORAL ONDANSETRONE 8MG BD 04-09/DEC/2021
     Route: 048
     Dates: start: 20211204, end: 20211209
  21. ACETAMINOPHEN [Concomitant]
     Active Substance: ACETAMINOPHEN
     Dosage: ORAL PARACETAMOL 1G 8HRLY 23-26/AUG/2021
     Route: 048
     Dates: start: 20210823, end: 20210826
  22. BENDROFLUMETHIAZIDE [Concomitant]
     Active Substance: BENDROFLUMETHIAZIDE
     Dosage: ORAL BENDROFUAZIDE 5MG OD 0 7-28/SEP/2021
     Route: 048
     Dates: start: 20210907, end: 20210928
  23. AMLODIPINE [Concomitant]
     Active Substance: AMLODIPINE BESYLATE
     Dosage: ORAL AMLODOPINE 10MG OD 04-10/AUG/2021
     Route: 048
     Dates: start: 20210804, end: 20210810
  24. ACYCLOVIR [Concomitant]
     Active Substance: ACYCLOVIR
     Dosage: ORAL ACYCLOVIR 400MG 6HRLY 16-23/AUG/2021
     Route: 048
     Dates: start: 20210816, end: 20210823
  25. ACYCLOVIR [Concomitant]
     Active Substance: ACYCLOVIR
     Dosage: ORAL AYCLOVIR 400MG BD 28SEP-04/OCT/2021
     Route: 048
     Dates: start: 20210928, end: 20211004
  26. ACYCLOVIR [Concomitant]
     Active Substance: ACYCLOVIR
     Dosage: ORAL ACYCLOVIR 22-29/OCT/2021
     Route: 048
     Dates: start: 20211022, end: 20211029
  27. ACYCLOVIR [Concomitant]
     Active Substance: ACYCLOVIR
     Dosage: ORAL ACYCLOVIR 400MG BD 12-19/NOV/2021
     Route: 048
     Dates: start: 20211112, end: 20211119

REACTIONS (10)
  - Splenic neoplasm malignancy unspecified [Unknown]
  - Hepatic steatosis [Unknown]
  - Abdominal pain [Recovered/Resolved]
  - Vomiting [Recovered/Resolved]
  - Dyspnoea [Unknown]
  - Productive cough [Unknown]
  - Pain [Unknown]
  - Decreased appetite [Unknown]
  - Odynophagia [Unknown]
  - Neutropenic sepsis [Unknown]

NARRATIVE: CASE EVENT DATE: 20211210
